FAERS Safety Report 20912027 (Version 1)
Quarter: 2022Q2

REPORT INFORMATION
  Report Type: Spontaneous
  Country: US (occurrence: US)
  Receive Date: 20220603
  Receipt Date: 20220603
  Transmission Date: 20220720
  Serious: No
  Sender: FDA-Public Use
  Company Number: US-BRISTOL-MYERS SQUIBB COMPANY-2022-049741

PATIENT
  Age: 74 Year
  Sex: Female
  Weight: 93.44 kg

DRUGS (1)
  1. POMALYST [Suspect]
     Active Substance: POMALIDOMIDE
     Indication: Plasma cell myeloma
     Dosage: D1-14 Q28 DAYS
     Dates: start: 20210909

REACTIONS (2)
  - Sinusitis [Recovering/Resolving]
  - Ear infection [Recovering/Resolving]
